FAERS Safety Report 6379284-9 (Version None)
Quarter: 2009Q3

REPORT INFORMATION
  Report Type: 
  Country: None (occurrence: None)
  Receive Date: 20090928
  Receipt Date: 20090918
  Transmission Date: 20100115
  Serious: Yes (Other)
  Sender: FDA-Public Use
  Company Number: CA-WYE-H11087009

PATIENT
  Age: 2 Year
  Sex: Male

DRUGS (1)
  1. ADVIL [Suspect]
     Dosage: AT LEAST 1-5 TABLETS X 1
     Route: 048
     Dates: start: 20090905, end: 20090905

REACTIONS (6)
  - ABNORMAL BEHAVIOUR [None]
  - ACCIDENTAL DRUG INTAKE BY CHILD [None]
  - ACCIDENTAL OVERDOSE [None]
  - CRYING [None]
  - SCREAMING [None]
  - VOMITING [None]
